FAERS Safety Report 8564343-2 (Version None)
Quarter: 2012Q3

REPORT INFORMATION
  Report Type: 
  Country: None (occurrence: None)
  Receive Date: 20120803
  Receipt Date: 20120730
  Transmission Date: 20120928
  Serious: No
  Sender: FDA-Public Use
  Company Number: US-BAYER-2012-076807

PATIENT
  Age: 33 Year
  Sex: Male
  Weight: 70.295 kg

DRUGS (1)
  1. ALEVE (CAPLET) [Suspect]
     Indication: PAIN
     Dosage: 3 DF, ONCE
     Route: 048
     Dates: start: 20120730, end: 20120730

REACTIONS (1)
  - NO ADVERSE EVENT [None]
